FAERS Safety Report 23142577 (Version 1)
Quarter: 2023Q4

REPORT INFORMATION
  Report Type: Spontaneous
  Country: BR (occurrence: BR)
  Receive Date: 20231103
  Receipt Date: 20231103
  Transmission Date: 20240110
  Serious: Yes (Other)
  Sender: FDA-Public Use
  Company Number: BR-BAXTER-2023BAX034350

PATIENT
  Age: 27 Year
  Sex: Female

DRUGS (8)
  1. IRON [Suspect]
     Active Substance: IRON
     Indication: Anaemia
     Dosage: 1 AMPUOLE DILUTED IN 250 ML OF SALINE SOLUTION IN 50 MINUTES, EVERY 12 HRS
     Route: 042
  2. SODIUM CHLORIDE [Suspect]
     Active Substance: SODIUM CHLORIDE
     Indication: Medication dilution
     Dosage: 250 ML IN SUCROFER FOR 50 MINUTES EVERY 12 HOURS
     Route: 042
  3. OMEPRAZOLE [Concomitant]
     Active Substance: OMEPRAZOLE
     Indication: Abdominal pain upper
     Dosage: 40 MG EVERY 12 HRS
     Route: 042
  4. ONDANSETRON [Concomitant]
     Active Substance: ONDANSETRON
     Indication: Nausea
     Dosage: 8 MG EVERY 8 HRS WITH DISTILLED WATER
     Route: 042
  5. Distilled water [Concomitant]
     Dosage: ONDANSETRON + DISTILLED WATER EVERY 8 HOURS
     Route: 042
  6. Vitamina e [Concomitant]
     Indication: Supplementation therapy
     Dosage: 500 MILLIGRAMS (MG), EVERY 12 HRS
     Route: 048
  7. VITAMIN B COMPLEX [Concomitant]
     Active Substance: CYANOCOBALAMIN\DEXPANTHENOL\NIACINAMIDE\PYRIDOXINE HYDROCHLORIDE\RIBOFLAVIN 5^-PHOSPHATE SODIUM\THIA
     Indication: Supplementation therapy
     Dosage: AT UNREPORTED DOSE DILUTED IN 250 ML OF SALINE SOLUTION EVERY 24 HRS
     Route: 042
  8. SALINE [Concomitant]
     Active Substance: SODIUM CHLORIDE
     Dosage: 250 ML OF SALINE SOLUTION EVERY 24 HRS
     Route: 042

REACTIONS (2)
  - Eyelid oedema [Recovered/Resolved]
  - Exposure during pregnancy [Unknown]

NARRATIVE: CASE EVENT DATE: 20231010
